FAERS Safety Report 20601771 (Version 27)
Quarter: 2023Q1

REPORT INFORMATION
  Report Type: Spontaneous
  Country: GB (occurrence: None)
  Receive Date: 20220316
  Receipt Date: 20230222
  Transmission Date: 20230417
  Serious: Yes (Death, Life-Threatening, Hospitalization, Other)
  Sender: FDA-Public Use
  Company Number: GB-MYLANLABS-2020M1053246

PATIENT
  Age: 56 Year
  Sex: Male
  Weight: 92 kg

DRUGS (218)
  1. METHOTREXATE [Suspect]
     Active Substance: METHOTREXATE
     Indication: Rheumatoid arthritis
     Route: 065
     Dates: start: 20100917
  2. METHOTREXATE [Suspect]
     Active Substance: METHOTREXATE
     Route: 065
     Dates: start: 20100917
  3. METHOTREXATE [Suspect]
     Active Substance: METHOTREXATE
     Route: 065
     Dates: start: 20100917
  4. METHOTREXATE [Suspect]
     Active Substance: METHOTREXATE
     Dosage: UNKNOWN, WEEKLY, QW (AT 17.5, WEEKLY)
     Route: 065
     Dates: start: 20100917
  5. METHOTREXATE [Suspect]
     Active Substance: METHOTREXATE
     Route: 065
     Dates: start: 20100917
  6. METHOTREXATE [Suspect]
     Active Substance: METHOTREXATE
     Route: 048
     Dates: start: 20100917
  7. METHOTREXATE [Suspect]
     Active Substance: METHOTREXATE
     Route: 048
     Dates: start: 20100917
  8. CARBAMAZEPINE [Suspect]
     Active Substance: CARBAMAZEPINE
     Indication: Product used for unknown indication
     Route: 048
  9. CARBAMAZEPINE [Suspect]
     Active Substance: CARBAMAZEPINE
     Route: 048
  10. CLOZARIL [Suspect]
     Active Substance: CLOZAPINE
     Indication: Schizophrenia
     Route: 048
     Dates: start: 20200403
  11. CLOZARIL [Suspect]
     Active Substance: CLOZAPINE
     Route: 048
     Dates: start: 20090403
  12. CLOZARIL [Suspect]
     Active Substance: CLOZAPINE
     Dosage: 8 MILLIGRAM, ONCE A DAY(8 MG, QD),
     Route: 048
     Dates: start: 20200521, end: 202005
  13. CLOZARIL [Suspect]
     Active Substance: CLOZAPINE
     Route: 048
     Dates: start: 20200521, end: 202005
  14. CLOZARIL [Suspect]
     Active Substance: CLOZAPINE
     Route: 048
     Dates: start: 20090403
  15. CLOZARIL [Suspect]
     Active Substance: CLOZAPINE
     Route: 048
     Dates: start: 20200403
  16. CLOZARIL [Suspect]
     Active Substance: CLOZAPINE
     Route: 048
  17. CLOZARIL [Suspect]
     Active Substance: CLOZAPINE
     Route: 048
     Dates: start: 202005
  18. CLOZARIL [Suspect]
     Active Substance: CLOZAPINE
     Route: 048
  19. CLOZARIL [Suspect]
     Active Substance: CLOZAPINE
     Route: 048
     Dates: start: 20200403
  20. CLOZARIL [Suspect]
     Active Substance: CLOZAPINE
     Route: 048
     Dates: start: 202005, end: 20200528
  21. CLOZARIL [Suspect]
     Active Substance: CLOZAPINE
     Route: 048
     Dates: start: 20200521
  22. CLOZARIL [Suspect]
     Active Substance: CLOZAPINE
     Route: 048
     Dates: start: 20200521
  23. CLOZARIL [Suspect]
     Active Substance: CLOZAPINE
     Route: 048
     Dates: start: 20200403
  24. CLOZARIL [Suspect]
     Active Substance: CLOZAPINE
     Route: 048
     Dates: start: 20200403
  25. CLOZARIL [Suspect]
     Active Substance: CLOZAPINE
     Route: 048
  26. CLOZARIL [Suspect]
     Active Substance: CLOZAPINE
     Route: 048
  27. CLOZARIL [Suspect]
     Active Substance: CLOZAPINE
     Route: 048
  28. CARBOCYSTEINE [Suspect]
     Active Substance: CARBOCYSTEINE
     Indication: Rheumatoid arthritis
     Route: 065
  29. CARBOCYSTEINE [Suspect]
     Active Substance: CARBOCYSTEINE
     Route: 048
     Dates: start: 20100917
  30. CARBOCYSTEINE [Suspect]
     Active Substance: CARBOCYSTEINE
     Route: 065
  31. CARBOCYSTEINE [Suspect]
     Active Substance: CARBOCYSTEINE
     Route: 065
  32. CARBOCYSTEINE [Suspect]
     Active Substance: CARBOCYSTEINE
     Route: 065
  33. CARBOCYSTEINE [Suspect]
     Active Substance: CARBOCYSTEINE
     Route: 048
     Dates: start: 20100917
  34. CARBOCYSTEINE [Suspect]
     Active Substance: CARBOCYSTEINE
     Route: 048
     Dates: start: 20100917
  35. CIPROFLOXACIN [Suspect]
     Active Substance: CIPROFLOXACIN
     Indication: Rheumatoid arthritis
     Route: 048
  36. CIPROFLOXACIN [Suspect]
     Active Substance: CIPROFLOXACIN
     Indication: Abdominal discomfort
     Route: 065
     Dates: start: 20100917
  37. CIPROFLOXACIN [Suspect]
     Active Substance: CIPROFLOXACIN
     Indication: Depression
     Route: 065
  38. CIPROFLOXACIN [Suspect]
     Active Substance: CIPROFLOXACIN
     Route: 048
  39. CIPROFLOXACIN [Suspect]
     Active Substance: CIPROFLOXACIN
     Route: 048
     Dates: start: 20100917
  40. CIPROFLOXACIN [Suspect]
     Active Substance: CIPROFLOXACIN
     Route: 048
  41. CIPROFLOXACIN [Suspect]
     Active Substance: CIPROFLOXACIN
     Route: 065
     Dates: start: 20100917
  42. CIPROFLOXACIN [Suspect]
     Active Substance: CIPROFLOXACIN
     Route: 065
  43. CIPROFLOXACIN [Suspect]
     Active Substance: CIPROFLOXACIN
     Route: 048
     Dates: start: 20100917
  44. CIPROFLOXACIN [Suspect]
     Active Substance: CIPROFLOXACIN
     Route: 048
  45. CIPROFLOXACIN [Suspect]
     Active Substance: CIPROFLOXACIN
     Route: 048
  46. DEXAMETHASONE [Suspect]
     Active Substance: DEXAMETHASONE
     Indication: Radiotherapy to pharynx
     Route: 048
  47. DEXAMETHASONE [Suspect]
     Active Substance: DEXAMETHASONE
     Indication: Radiotherapy
     Route: 048
     Dates: start: 20200521, end: 202005
  48. DEXAMETHASONE [Suspect]
     Active Substance: DEXAMETHASONE
     Indication: Abdominal discomfort
     Route: 048
     Dates: start: 20200528
  49. DEXAMETHASONE [Suspect]
     Active Substance: DEXAMETHASONE
     Route: 048
  50. DEXAMETHASONE [Suspect]
     Active Substance: DEXAMETHASONE
     Route: 048
     Dates: start: 20200528
  51. DEXAMETHASONE [Suspect]
     Active Substance: DEXAMETHASONE
     Route: 048
     Dates: start: 20200515, end: 202005
  52. DEXAMETHASONE [Suspect]
     Active Substance: DEXAMETHASONE
     Route: 065
     Dates: start: 202005
  53. DEXAMETHASONE [Suspect]
     Active Substance: DEXAMETHASONE
     Route: 048
     Dates: start: 202005
  54. DEXAMETHASONE [Suspect]
     Active Substance: DEXAMETHASONE
     Route: 048
  55. DEXAMETHASONE [Suspect]
     Active Substance: DEXAMETHASONE
     Route: 048
     Dates: start: 20200521, end: 20200528
  56. DEXAMETHASONE [Suspect]
     Active Substance: DEXAMETHASONE
     Route: 048
     Dates: start: 20200521, end: 20200528
  57. DEXAMETHASONE [Suspect]
     Active Substance: DEXAMETHASONE
     Route: 048
  58. DEXAMETHASONE [Suspect]
     Active Substance: DEXAMETHASONE
     Route: 065
     Dates: start: 202005
  59. DEXAMETHASONE [Suspect]
     Active Substance: DEXAMETHASONE
     Route: 065
     Dates: start: 202005
  60. DEXAMETHASONE [Suspect]
     Active Substance: DEXAMETHASONE
     Route: 048
     Dates: start: 20200515, end: 202005
  61. DEXAMETHASONE [Suspect]
     Active Substance: DEXAMETHASONE
     Route: 048
     Dates: end: 20200528
  62. DEXAMETHASONE [Suspect]
     Active Substance: DEXAMETHASONE
     Route: 048
  63. DEXAMETHASONE [Suspect]
     Active Substance: DEXAMETHASONE
     Route: 065
  64. DEXAMETHASONE [Suspect]
     Active Substance: DEXAMETHASONE
     Route: 048
  65. DEXAMETHASONE [Suspect]
     Active Substance: DEXAMETHASONE
     Route: 048
     Dates: start: 202005, end: 20200528
  66. DEXAMETHASONE [Suspect]
     Active Substance: DEXAMETHASONE
     Route: 048
  67. DEXAMETHASONE [Suspect]
     Active Substance: DEXAMETHASONE
     Route: 048
     Dates: start: 20200528, end: 20200528
  68. DEXAMETHASONE [Suspect]
     Active Substance: DEXAMETHASONE
     Route: 048
     Dates: start: 20200528, end: 20200528
  69. DEXAMETHASONE [Suspect]
     Active Substance: DEXAMETHASONE
     Route: 048
     Dates: start: 202005, end: 20200528
  70. DEXAMETHASONE [Suspect]
     Active Substance: DEXAMETHASONE
     Route: 048
     Dates: start: 20200528
  71. DEXAMETHASONE [Suspect]
     Active Substance: DEXAMETHASONE
     Route: 065
     Dates: start: 202005
  72. DEXAMETHASONE [Suspect]
     Active Substance: DEXAMETHASONE
     Route: 048
     Dates: start: 20200528
  73. DEXAMETHASONE [Suspect]
     Active Substance: DEXAMETHASONE
     Route: 065
     Dates: start: 20200521, end: 20200528
  74. DEXAMETHASONE [Suspect]
     Active Substance: DEXAMETHASONE
     Route: 065
     Dates: start: 20200515, end: 20200528
  75. DEXAMETHASONE [Suspect]
     Active Substance: DEXAMETHASONE
     Route: 065
  76. DEXAMETHASONE [Suspect]
     Active Substance: DEXAMETHASONE
     Route: 048
  77. DEXAMETHASONE [Suspect]
     Active Substance: DEXAMETHASONE
     Route: 048
     Dates: start: 202005
  78. DEXAMETHASONE [Suspect]
     Active Substance: DEXAMETHASONE
     Route: 048
     Dates: start: 20200521
  79. DEXAMETHASONE [Suspect]
     Active Substance: DEXAMETHASONE
     Route: 048
     Dates: start: 20200521, end: 20200528
  80. DEXAMETHASONE [Suspect]
     Active Substance: DEXAMETHASONE
     Route: 048
     Dates: start: 20200528
  81. DEXAMETHASONE [Suspect]
     Active Substance: DEXAMETHASONE
     Route: 065
     Dates: start: 202005
  82. ENBREL [Suspect]
     Active Substance: ETANERCEPT
     Indication: Rheumatoid arthritis
     Route: 042
     Dates: start: 20100917
  83. ENBREL [Suspect]
     Active Substance: ETANERCEPT
     Route: 042
     Dates: start: 20100917
  84. ENBREL [Suspect]
     Active Substance: ETANERCEPT
     Dosage: NO ACTIVES PRESENT
     Route: 065
     Dates: start: 20100917
  85. ENBREL [Suspect]
     Active Substance: ETANERCEPT
     Dosage: NO ACTIVES PRESENT
     Route: 042
     Dates: start: 20100917
  86. FOLIC ACID [Suspect]
     Active Substance: FOLIC ACID
     Indication: Product used for unknown indication
     Route: 048
  87. FOLIC ACID [Suspect]
     Active Substance: FOLIC ACID
     Route: 048
  88. FOLIC ACID [Suspect]
     Active Substance: FOLIC ACID
     Route: 065
  89. FOLIC ACID [Suspect]
     Active Substance: FOLIC ACID
     Route: 048
  90. FOLIC ACID [Suspect]
     Active Substance: FOLIC ACID
     Route: 048
  91. GUANIDINE [Suspect]
     Active Substance: GUANIDINE
     Indication: Depression
     Dosage: 1,3-DIPHENYLGUANIDINE
     Route: 048
  92. GUANIDINE [Suspect]
     Active Substance: GUANIDINE
     Indication: Abdominal discomfort
     Route: 065
  93. GUANIDINE [Suspect]
     Active Substance: GUANIDINE
     Route: 048
  94. IRBESARTAN [Suspect]
     Active Substance: IRBESARTAN
     Indication: Abdominal discomfort
     Route: 065
     Dates: start: 20100912
  95. IRBESARTAN [Suspect]
     Active Substance: IRBESARTAN
     Route: 065
     Dates: start: 20100917
  96. IRBESARTAN [Suspect]
     Active Substance: IRBESARTAN
     Route: 065
     Dates: start: 20100912
  97. IRBESARTAN [Suspect]
     Active Substance: IRBESARTAN
     Route: 048
     Dates: start: 20100917
  98. IRBESARTAN [Suspect]
     Active Substance: IRBESARTAN
     Route: 048
     Dates: start: 20100912
  99. OMEPRAZOLE [Suspect]
     Active Substance: OMEPRAZOLE
     Indication: Abdominal discomfort
     Route: 065
  100. OMEPRAZOLE [Suspect]
     Active Substance: OMEPRAZOLE
     Indication: Gastrooesophageal reflux disease
     Route: 065
  101. OMEPRAZOLE [Suspect]
     Active Substance: OMEPRAZOLE
     Route: 065
     Dates: start: 20100917
  102. OMEPRAZOLE [Suspect]
     Active Substance: OMEPRAZOLE
     Route: 048
  103. OMEPRAZOLE [Suspect]
     Active Substance: OMEPRAZOLE
     Route: 003
  104. OMEPRAZOLE [Suspect]
     Active Substance: OMEPRAZOLE
     Route: 048
  105. OMEPRAZOLE [Suspect]
     Active Substance: OMEPRAZOLE
     Route: 048
  106. OMEPRAZOLE [Suspect]
     Active Substance: OMEPRAZOLE
     Route: 048
  107. OMEPRAZOLE [Suspect]
     Active Substance: OMEPRAZOLE
     Route: 048
  108. OMEPRAZOLE [Suspect]
     Active Substance: OMEPRAZOLE
     Route: 048
  109. OMEPRAZOLE [Suspect]
     Active Substance: OMEPRAZOLE
     Route: 048
  110. OMEPRAZOLE [Suspect]
     Active Substance: OMEPRAZOLE
     Route: 065
     Dates: start: 20100917
  111. OMEPRAZOLE [Suspect]
     Active Substance: OMEPRAZOLE
     Dosage: 12 MG, BID
     Route: 048
  112. OMEPRAZOLE [Suspect]
     Active Substance: OMEPRAZOLE
     Dosage: 20 MG, BID (20 MG, Q12H (20 MG, BID)
     Route: 048
  113. OMEPRAZOLE [Suspect]
     Active Substance: OMEPRAZOLE
     Route: 048
  114. OMEPRAZOLE [Suspect]
     Active Substance: OMEPRAZOLE
     Dosage: 12 MG, BID
     Route: 048
  115. OMEPRAZOLE [Suspect]
     Active Substance: OMEPRAZOLE
     Dosage: 12 MG, Q12H
     Route: 048
  116. OMEPRAZOLE [Suspect]
     Active Substance: OMEPRAZOLE
     Dosage: 20 MG, BID
     Route: 048
  117. OMEPRAZOLE [Suspect]
     Active Substance: OMEPRAZOLE
     Dosage: 20 MG, BID
     Route: 048
  118. OMEPRAZOLE [Suspect]
     Active Substance: OMEPRAZOLE
     Dosage: 20 MG, BID
     Route: 048
  119. OMEPRAZOLE [Suspect]
     Active Substance: OMEPRAZOLE
     Route: 048
  120. OMEPRAZOLE [Suspect]
     Active Substance: OMEPRAZOLE
     Dosage: 20 MG, BID
     Route: 048
  121. OMEPRAZOLE [Suspect]
     Active Substance: OMEPRAZOLE
     Route: 065
  122. OMEPRAZOLE [Suspect]
     Active Substance: OMEPRAZOLE
     Route: 065
  123. OMEPRAZOLE [Suspect]
     Active Substance: OMEPRAZOLE
     Route: 065
  124. OMEPRAZOLE [Suspect]
     Active Substance: OMEPRAZOLE
     Route: 048
  125. OMEPRAZOLE [Suspect]
     Active Substance: OMEPRAZOLE
     Route: 048
  126. OMEPRAZOLE [Suspect]
     Active Substance: OMEPRAZOLE
     Route: 065
  127. OMEPRAZOLE [Suspect]
     Active Substance: OMEPRAZOLE
     Route: 065
  128. OMEPRAZOLE [Suspect]
     Active Substance: OMEPRAZOLE
     Route: 065
  129. OMEPRAZOLE [Suspect]
     Active Substance: OMEPRAZOLE
     Dosage: 20 MG, BID (40 MG, QD)
     Route: 048
  130. OMEPRAZOLE [Suspect]
     Active Substance: OMEPRAZOLE
     Route: 048
  131. OMEPRAZOLE [Suspect]
     Active Substance: OMEPRAZOLE
     Route: 048
  132. OMEPRAZOLE [Suspect]
     Active Substance: OMEPRAZOLE
     Route: 065
  133. OMEPRAZOLE [Suspect]
     Active Substance: OMEPRAZOLE
     Dosage: 12 MG, BID
     Route: 065
  134. OMEPRAZOLE [Suspect]
     Active Substance: OMEPRAZOLE
     Route: 048
  135. OMEPRAZOLE [Suspect]
     Active Substance: OMEPRAZOLE
     Dosage: 40 MG (20 MG, BID)
     Route: 065
  136. OMEPRAZOLE [Suspect]
     Active Substance: OMEPRAZOLE
     Dosage: 40 MG (20 MG, BID)
     Route: 065
  137. PHYLLOCONTIN [Suspect]
     Active Substance: AMINOPHYLLINE
     Indication: Product used for unknown indication
     Route: 065
     Dates: start: 20100917
  138. PHYLLOCONTIN [Suspect]
     Active Substance: AMINOPHYLLINE
     Route: 065
  139. SIMVASTATIN [Suspect]
     Active Substance: SIMVASTATIN
     Indication: Product used for unknown indication
     Route: 048
  140. SIMVASTATIN [Suspect]
     Active Substance: SIMVASTATIN
     Route: 048
  141. SIMVASTATIN [Suspect]
     Active Substance: SIMVASTATIN
     Route: 048
  142. SIMVASTATIN [Suspect]
     Active Substance: SIMVASTATIN
     Route: 048
  143. SIMVASTATIN [Suspect]
     Active Substance: SIMVASTATIN
     Route: 048
  144. SIMVASTATIN [Suspect]
     Active Substance: SIMVASTATIN
     Route: 065
  145. SIMVASTATIN [Suspect]
     Active Substance: SIMVASTATIN
     Route: 065
  146. SIMVASTATIN [Suspect]
     Active Substance: SIMVASTATIN
     Route: 048
  147. SIMVASTATIN [Suspect]
     Active Substance: SIMVASTATIN
     Route: 048
  148. SIMVASTATIN [Suspect]
     Active Substance: SIMVASTATIN
     Route: 048
  149. SIMVASTATIN [Suspect]
     Active Substance: SIMVASTATIN
     Route: 048
  150. SIMVASTATIN [Suspect]
     Active Substance: SIMVASTATIN
     Route: 048
  151. TAMSULOSIN HYDROCHLORIDE [Suspect]
     Active Substance: TAMSULOSIN HYDROCHLORIDE
     Indication: Product used for unknown indication
     Route: 065
  152. TAMSULOSIN HYDROCHLORIDE [Suspect]
     Active Substance: TAMSULOSIN HYDROCHLORIDE
     Route: 065
  153. VENLAFAXINE HYDROCHLORIDE [Suspect]
     Active Substance: VENLAFAXINE HYDROCHLORIDE
     Indication: Rheumatoid arthritis
     Dosage: PROLONGED RELEASE
     Route: 065
  154. VENLAFAXINE HYDROCHLORIDE [Suspect]
     Active Substance: VENLAFAXINE HYDROCHLORIDE
     Indication: Depression
     Dosage: PROLONGED RELEASE
     Route: 065
  155. ACTIVATED CHARCOAL [Suspect]
     Active Substance: ACTIVATED CHARCOAL
     Indication: Product used for unknown indication
     Route: 065
  156. DITIOCARB [Suspect]
     Active Substance: DITIOCARB
     Indication: Abdominal discomfort
     Route: 065
  157. DITIOCARB [Suspect]
     Active Substance: DITIOCARB
     Route: 065
  158. DITIOCARB [Suspect]
     Active Substance: DITIOCARB
     Route: 065
  159. CIPROFLOXACIN [Suspect]
     Active Substance: CIPROFLOXACIN
     Indication: Rheumatoid arthritis
     Route: 065
     Dates: start: 20100917
  160. CIPROFLOXACIN [Suspect]
     Active Substance: CIPROFLOXACIN
     Indication: Abdominal discomfort
     Dosage: 1000 MG, QD
     Route: 048
     Dates: start: 20100917
  161. CIPROFLOXACIN [Suspect]
     Active Substance: CIPROFLOXACIN
     Route: 065
  162. CIPROFLOXACIN [Suspect]
     Active Substance: CIPROFLOXACIN
     Route: 065
  163. DITIOCARB ZINC [Suspect]
     Active Substance: DITIOCARB ZINC
     Indication: Abdominal discomfort
     Route: 065
  164. DITIOCARB ZINC [Suspect]
     Active Substance: DITIOCARB ZINC
     Indication: Depression
     Route: 065
  165. CLOZAPINE [Suspect]
     Active Substance: CLOZAPINE
     Indication: Schizophrenia
     Route: 048
     Dates: start: 20200403
  166. CLOZAPINE [Suspect]
     Active Substance: CLOZAPINE
     Route: 048
     Dates: start: 20090403
  167. CLOZAPINE [Suspect]
     Active Substance: CLOZAPINE
     Route: 048
     Dates: start: 20200521, end: 202005
  168. CLOZAPINE [Suspect]
     Active Substance: CLOZAPINE
     Route: 048
     Dates: start: 202005, end: 20200528
  169. CLOZAPINE [Suspect]
     Active Substance: CLOZAPINE
     Route: 048
     Dates: start: 20090403
  170. CLOZAPINE [Suspect]
     Active Substance: CLOZAPINE
     Route: 048
     Dates: start: 20200403
  171. CLOZAPINE [Suspect]
     Active Substance: CLOZAPINE
     Route: 048
     Dates: start: 20090403, end: 202005
  172. CLOZAPINE [Suspect]
     Active Substance: CLOZAPINE
     Route: 048
     Dates: start: 20200521
  173. VENLAFAXINE HYDROCHLORIDE [Suspect]
     Active Substance: VENLAFAXINE HYDROCHLORIDE
     Indication: Rheumatoid arthritis
     Dosage: PROLONGED RELEASE
     Route: 065
  174. VENLAFAXINE HYDROCHLORIDE [Suspect]
     Active Substance: VENLAFAXINE HYDROCHLORIDE
     Indication: Depression
     Route: 065
  175. VENLAFAXINE HYDROCHLORIDE [Suspect]
     Active Substance: VENLAFAXINE HYDROCHLORIDE
     Route: 065
  176. VENLAFAXINE HYDROCHLORIDE [Suspect]
     Active Substance: VENLAFAXINE HYDROCHLORIDE
     Route: 065
  177. SULFAGUANIDINE [Suspect]
     Active Substance: SULFAGUANIDINE
     Indication: Product used for unknown indication
     Route: 048
  178. SULFAGUANIDINE [Suspect]
     Active Substance: SULFAGUANIDINE
     Route: 065
  179. ZINC [Suspect]
     Active Substance: ZINC
     Indication: Product used for unknown indication
     Route: 065
  180. DEXAMETHASONE SODIUM PHOSPHATE [Suspect]
     Active Substance: DEXAMETHASONE SODIUM PHOSPHATE
     Indication: Radiotherapy to pharynx
     Route: 048
     Dates: start: 20200521, end: 20200528
  181. DEXAMETHASONE SODIUM PHOSPHATE [Suspect]
     Active Substance: DEXAMETHASONE SODIUM PHOSPHATE
     Indication: Radiotherapy
     Route: 048
     Dates: start: 202005, end: 20200528
  182. DEXAMETHASONE SODIUM PHOSPHATE [Suspect]
     Active Substance: DEXAMETHASONE SODIUM PHOSPHATE
     Indication: Abdominal discomfort
     Route: 048
     Dates: start: 20200528
  183. DEXAMETHASONE SODIUM PHOSPHATE [Suspect]
     Active Substance: DEXAMETHASONE SODIUM PHOSPHATE
     Route: 048
     Dates: start: 20200521, end: 202005
  184. DEXAMETHASONE SODIUM PHOSPHATE [Suspect]
     Active Substance: DEXAMETHASONE SODIUM PHOSPHATE
     Route: 048
     Dates: start: 20200521, end: 20200528
  185. DEXAMETHASONE SODIUM PHOSPHATE [Suspect]
     Active Substance: DEXAMETHASONE SODIUM PHOSPHATE
     Route: 048
     Dates: start: 202005
  186. DEXAMETHASONE SODIUM PHOSPHATE [Suspect]
     Active Substance: DEXAMETHASONE SODIUM PHOSPHATE
     Route: 048
     Dates: start: 20200515, end: 202005
  187. DEXAMETHASONE SODIUM PHOSPHATE [Suspect]
     Active Substance: DEXAMETHASONE SODIUM PHOSPHATE
     Route: 048
     Dates: start: 20200528
  188. TRIMETHOPRIM [Suspect]
     Active Substance: TRIMETHOPRIM
     Indication: Urinary tract infection
     Route: 048
     Dates: start: 20190118, end: 20190120
  189. TRIMETHOPRIM [Suspect]
     Active Substance: TRIMETHOPRIM
     Route: 048
     Dates: start: 20190118
  190. TRIMETHOPRIM [Suspect]
     Active Substance: TRIMETHOPRIM
     Route: 048
     Dates: start: 20190118, end: 20190120
  191. TRIMETHOPRIM [Suspect]
     Active Substance: TRIMETHOPRIM
     Route: 048
     Dates: start: 20190118, end: 20190120
  192. SOLIFENACIN [Suspect]
     Active Substance: SOLIFENACIN
     Indication: Product used for unknown indication
     Route: 048
  193. LANSOPRAZOLE [Suspect]
     Active Substance: LANSOPRAZOLE
     Indication: Pruritus
     Route: 065
  194. LANSOPRAZOLE [Suspect]
     Active Substance: LANSOPRAZOLE
     Indication: Reflux laryngitis
  195. DOMPERIDONE [Suspect]
     Active Substance: DOMPERIDONE
     Indication: Product used for unknown indication
     Route: 048
  196. AMINOPHYLLINE [Suspect]
     Active Substance: AMINOPHYLLINE
     Indication: Product used for unknown indication
     Route: 065
     Dates: start: 20100917
  197. AMINOPHYLLINE [Suspect]
     Active Substance: AMINOPHYLLINE
     Route: 065
     Dates: start: 20100917
  198. KETOPROFEN [Concomitant]
     Active Substance: KETOPROFEN
     Indication: Empty sella syndrome
     Route: 065
  199. BENDROFLUMETHIAZIDE [Concomitant]
     Active Substance: BENDROFLUMETHIAZIDE
     Indication: Depression
     Route: 065
  200. BENDROFLUMETHIAZIDE [Concomitant]
     Active Substance: BENDROFLUMETHIAZIDE
     Indication: Pituitary tumour
     Route: 065
  201. BENDROFLUMETHIAZIDE [Concomitant]
     Active Substance: BENDROFLUMETHIAZIDE
     Indication: Empty sella syndrome
     Route: 065
  202. CABERGOLINE [Concomitant]
     Active Substance: CABERGOLINE
     Indication: Pituitary tumour
     Route: 065
  203. CABERGOLINE [Concomitant]
     Active Substance: CABERGOLINE
     Indication: Empty sella syndrome
     Route: 065
  204. CABERGOLINE [Concomitant]
     Active Substance: CABERGOLINE
     Route: 065
  205. CETIRIZINE [Concomitant]
     Active Substance: CETIRIZINE HYDROCHLORIDE
     Indication: Abdominal discomfort
     Route: 065
  206. CETIRIZINE [Concomitant]
     Active Substance: CETIRIZINE HYDROCHLORIDE
     Route: 065
  207. EZETIMIBE [Concomitant]
     Active Substance: EZETIMIBE
     Route: 065
  208. LEVOTHYROXINE [Concomitant]
     Active Substance: LEVOTHYROXINE
     Indication: Abdominal discomfort
     Route: 065
  209. LEVOTHYROXINE [Concomitant]
     Active Substance: LEVOTHYROXINE
     Indication: Depression
     Route: 065
  210. ORUVAIL [Concomitant]
     Active Substance: KETOPROFEN
     Indication: Empty sella syndrome
     Route: 065
  211. FOLIC ACID [Concomitant]
     Active Substance: FOLIC ACID
     Dosage: (5 MILLIGRAM (ORAL SOLUTION))
     Route: 048
  212. FOLIC ACID [Concomitant]
     Active Substance: FOLIC ACID
     Route: 065
  213. FOLIC ACID [Concomitant]
     Active Substance: FOLIC ACID
     Route: 048
  214. CHARCOAL ACTIVATED [Concomitant]
     Active Substance: ACTIVATED CHARCOAL
     Route: 065
  215. CHARCOAL ACTIVATED [Concomitant]
     Active Substance: ACTIVATED CHARCOAL
     Route: 065
  216. ACTIVATED CHARCOAL [Concomitant]
     Active Substance: ACTIVATED CHARCOAL
     Route: 065
  217. DULOXETINE [Concomitant]
     Active Substance: DULOXETINE
     Route: 065
  218. BECLOMETHASONE DIPROPIONATE [Concomitant]
     Active Substance: BECLOMETHASONE DIPROPIONATE
     Route: 065
     Dates: start: 20190102

REACTIONS (36)
  - Overdose [Fatal]
  - Product dose omission issue [Fatal]
  - Intentional product misuse [Fatal]
  - Drug abuse [Fatal]
  - Lung neoplasm malignant [Fatal]
  - COVID-19 [Fatal]
  - Lower respiratory tract infection [Fatal]
  - Pulmonary pain [Fatal]
  - Abdominal discomfort [Fatal]
  - Arthropathy [Fatal]
  - Rash [Fatal]
  - Radiation inflammation [Fatal]
  - Off label use [Fatal]
  - Inflammation [Fatal]
  - Dementia [Unknown]
  - Blood potassium decreased [Unknown]
  - Genital pain [Recovered/Resolved]
  - Abdominal pain upper [Recovering/Resolving]
  - Malaise [Unknown]
  - Abdominal pain [Recovered/Resolved]
  - Feeling abnormal [Unknown]
  - Peripheral swelling [Unknown]
  - Nightmare [Not Recovered/Not Resolved]
  - Illness [Recovering/Resolving]
  - Genital ulceration [Recovered/Resolved]
  - Contusion [Not Recovered/Not Resolved]
  - Irritable bowel syndrome [Unknown]
  - Gastrointestinal pain [Not Recovered/Not Resolved]
  - Drug interaction [Unknown]
  - Mucosal inflammation [Recovered/Resolved]
  - Vomiting [Unknown]
  - Oral pain [Recovering/Resolving]
  - Diarrhoea [Recovered/Resolved]
  - Condition aggravated [Unknown]
  - Food poisoning [Not Recovered/Not Resolved]
  - Inappropriate schedule of product administration [Unknown]

NARRATIVE: CASE EVENT DATE: 20200401
